FAERS Safety Report 4898448-4 (Version None)
Quarter: 2006Q1

REPORT INFORMATION
  Report Type: 
  Country: None (occurrence: None)
  Receive Date: 20060127
  Receipt Date: 20060117
  Transmission Date: 20060701
  Serious: Yes (Other)
  Sender: FDA-Public Use
  Company Number: 2005159550

PATIENT
  Sex: Female
  Weight: 68.0396 kg

DRUGS (4)
  1. LIPITOR [Suspect]
     Indication: ILL-DEFINED DISORDER
     Dosage: 10 MG (10 MG, 1 IN 1 D),
     Dates: end: 20051117
  2. CELEBREX [Suspect]
     Indication: BACK PAIN
     Dosage: 200 MG (200 MG, 1 IN 1 D),
  3. BEXTRA [Suspect]
     Indication: ILL-DEFINED DISORDER
  4. LEVOXYL [Concomitant]

REACTIONS (11)
  - ARTHRALGIA [None]
  - AUTOIMMUNE DISORDER [None]
  - AUTOIMMUNE THYROIDITIS [None]
  - BACK PAIN [None]
  - CONDITION AGGRAVATED [None]
  - ERYTHEMA NODOSUM [None]
  - INTERVERTEBRAL DISC DEGENERATION [None]
  - MIXED CONNECTIVE TISSUE DISEASE [None]
  - MYALGIA [None]
  - PAIN IN EXTREMITY [None]
  - PROCEDURAL PAIN [None]
